FAERS Safety Report 5913066-4 (Version None)
Quarter: 2008Q4

REPORT INFORMATION
  Report Type: 
  Country: None (occurrence: None)
  Receive Date: 20081008
  Receipt Date: 20081008
  Transmission Date: 20090506
  Serious: Yes (Other)
  Sender: FDA-Public Use
  Company Number: None

PATIENT
  Age: 44 Year
  Sex: Male
  Weight: 113.3993 kg

DRUGS (2)
  1. METOPROLOL SUCCINATE EXTENDED RELEASE [Suspect]
     Indication: HYPERTENSION
     Dosage: 1 TAB QD PO
     Route: 048
     Dates: start: 20080705, end: 20081005
  2. METOPROLOL SUCCINATE EXTENDED RELEASE [Suspect]
     Indication: TACHYCARDIA
     Dosage: 1 TAB QD PO
     Route: 048
     Dates: start: 20080705, end: 20081005

REACTIONS (5)
  - CHEST PAIN [None]
  - DEPRESSION [None]
  - DIZZINESS [None]
  - OEDEMA [None]
  - WEIGHT INCREASED [None]
